FAERS Safety Report 12508355 (Version 2)
Quarter: 2016Q3

REPORT INFORMATION
  Report Type: Report from Study
  Country: US (occurrence: US)
  Receive Date: 20160629
  Receipt Date: 20160802
  Transmission Date: 20161109
  Serious: Yes (Hospitalization)
  Sender: FDA-Public Use
  Company Number: US-GILEAD-2016-0221151

PATIENT
  Age: 51 Year
  Sex: Male

DRUGS (5)
  1. AMBRISENTAN [Suspect]
     Active Substance: AMBRISENTAN
     Indication: PRODUCT USED FOR UNKNOWN INDICATION
     Dosage: 10 MG, QD
     Route: 065
  2. TYVASO [Concomitant]
     Active Substance: TREPROSTINIL
  3. ADCIRCA [Concomitant]
     Active Substance: TADALAFIL
  4. ADEMPAS [Concomitant]
     Active Substance: RIOCIGUAT
  5. ELIQUIS [Concomitant]
     Active Substance: APIXABAN

REACTIONS (4)
  - Chest pain [Recovered/Resolved]
  - Dyspnoea [Unknown]
  - Visual impairment [Unknown]
  - Dehydration [Unknown]
